FAERS Safety Report 14803534 (Version 5)
Quarter: 2018Q2

REPORT INFORMATION
  Report Type: Spontaneous
  Country: ES (occurrence: ES)
  Receive Date: 20180425
  Receipt Date: 20180605
  Transmission Date: 20180711
  Serious: Yes (Death, Hospitalization, Other)
  Sender: FDA-Public Use
  Company Number: ES-ROCHE-2113394

PATIENT
  Age: 62 Year
  Sex: Male

DRUGS (24)
  1. QUETIAPINA [Interacting]
     Active Substance: QUETIAPINE
     Indication: DEPRESSION
     Dosage: 1-1-1-0
     Route: 065
  2. TIOTROPIO [Interacting]
     Active Substance: TIOTROPIUM BROMIDE
     Indication: CHRONIC OBSTRUCTIVE PULMONARY DISEASE
     Dosage: 2 PUFFS
     Route: 065
  3. LORATADINA [Interacting]
     Active Substance: LORATADINE
     Indication: RHINITIS ALLERGIC
     Dosage: 1-0-0-0
     Route: 065
  4. CLONAZEPAM. [Interacting]
     Active Substance: CLONAZEPAM
     Indication: AGGRESSION
     Route: 065
  5. VALPROIC ACID. [Interacting]
     Active Substance: VALPROIC ACID
     Indication: EPILEPSY
     Dosage: 1-1-1-0
     Route: 065
  6. VALPROIC ACID. [Interacting]
     Active Substance: VALPROIC ACID
     Dosage: 1-1-1-0
     Route: 065
  7. LEVOTIROXINA (LEVOTHYROXINE SODIUM) [Interacting]
     Active Substance: LEVOTHYROXINE SODIUM
     Indication: HYPOTHYROIDISM
     Dosage: 100-200 MG
     Route: 065
  8. METFORMIN [Interacting]
     Active Substance: METFORMIN HYDROCHLORIDE
     Indication: TYPE 2 DIABETES MELLITUS
     Route: 065
  9. METFORMIN [Interacting]
     Active Substance: METFORMIN HYDROCHLORIDE
     Dosage: 3 G/DAY
     Route: 048
  10. FLUTICASONE/SALMETEROL [Interacting]
     Active Substance: FLUTICASONE PROPIONATE\SALMETEROL XINAFOATE
     Indication: DYSPNOEA
     Dosage: 2 PUFF
     Route: 065
  11. HALOPERIDOL. [Interacting]
     Active Substance: HALOPERIDOL
     Indication: PSYCHOTIC DISORDER
     Dosage: 1-1-1-0
     Route: 065
  12. HALOPERIDOL. [Interacting]
     Active Substance: HALOPERIDOL
     Indication: AGITATION
     Route: 065
  13. CLONAZEPAM. [Interacting]
     Active Substance: CLONAZEPAM
     Dosage: 0.5 MG, 4X PER DAY
     Route: 065
  14. QUETIAPINA [Interacting]
     Active Substance: QUETIAPINE
     Indication: MAJOR DEPRESSION
     Dosage: 1-1-1-0
     Route: 065
  15. TIOTROPIO [Interacting]
     Active Substance: TIOTROPIUM BROMIDE
     Dosage: 1-0-0-0
     Route: 065
  16. LEVOTIROXINA (LEVOTHYROXINE SODIUM) [Interacting]
     Active Substance: LEVOTHYROXINE SODIUM
     Indication: AGITATION
     Dosage: 100-200 MG
     Route: 065
  17. FLUTICASONE/SALMETEROL [Interacting]
     Active Substance: FLUTICASONE PROPIONATE\SALMETEROL XINAFOATE
     Indication: HYPERGLYCAEMIA
  18. HALOPERIDOL. [Interacting]
     Active Substance: HALOPERIDOL
     Indication: NERVOUS SYSTEM DISORDER
     Dosage: 10-20 MG
     Route: 065
  19. QUETIAPINA [Interacting]
     Active Substance: QUETIAPINE
     Indication: TYPE 2 DIABETES MELLITUS
     Dosage: 1-1-1-0
     Route: 065
  20. FLUTICASONE/SALMETEROL [Interacting]
     Active Substance: FLUTICASONE PROPIONATE\SALMETEROL XINAFOATE
     Indication: ASTHMA
     Route: 048
  21. VALPROIC ACID. [Interacting]
     Active Substance: VALPROIC ACID
     Indication: MANIA
     Dosage: 1-1-1-0
     Route: 065
  22. QUETIAPINA [Interacting]
     Active Substance: QUETIAPINE
     Indication: SCHIZOPHRENIA
     Dosage: 400 TO 800 MG/DAY
     Route: 065
  23. CLONAZEPAM. [Suspect]
     Active Substance: CLONAZEPAM
     Indication: EPILEPSY
     Dosage: 1-1-1-1 CRONICA
     Route: 065
  24. QUETIAPINA [Interacting]
     Active Substance: QUETIAPINE
     Indication: HYPOTHYROIDISM

REACTIONS (7)
  - Hyperprolactinaemia [Unknown]
  - Coma [Unknown]
  - Cardiac failure [Fatal]
  - Prescribed overdose [Fatal]
  - Ventricular fibrillation [Fatal]
  - Off label use [Fatal]
  - Drug interaction [Unknown]
